FAERS Safety Report 6283262-8 (Version None)
Quarter: 2009Q3

REPORT INFORMATION
  Report Type: 
  Country: None (occurrence: None)
  Receive Date: 20090722
  Receipt Date: 20090722
  Transmission Date: 20100115
  Serious: Yes (Hospitalization)
  Sender: FDA-Public Use
  Company Number: None

PATIENT
  Sex: Male
  Weight: 95.3 kg

DRUGS (2)
  1. CASODEX [Suspect]
     Dosage: 2600 MG
  2. LEUPROLIDE ACETATE [Suspect]
     Dosage: 22.5 MG

REACTIONS (2)
  - CARDIAC FAILURE CONGESTIVE [None]
  - CONDITION AGGRAVATED [None]
